FAERS Safety Report 8521788-4 (Version None)
Quarter: 2012Q3

REPORT INFORMATION
  Report Type: 
  Country: None (occurrence: None)
  Receive Date: 20120719
  Receipt Date: 20120430
  Transmission Date: 20120928
  Serious: Yes (Death)
  Sender: FDA-Public Use
  Company Number: US-BRISTOL-MYERS SQUIBB COMPANY-16331886

PATIENT
  Age: 45 Year
  Sex: Male

DRUGS (6)
  1. LORTAB [Concomitant]
  2. YERVOY [Suspect]
     Indication: MALIGNANT MELANOMA
     Route: 042
     Dates: start: 20111103, end: 20111202
  3. MICRO-K [Concomitant]
  4. ALBUTEROL [Concomitant]
  5. DECADRON [Concomitant]
  6. PRINIVIL [Concomitant]

REACTIONS (1)
  - NEOPLASM MALIGNANT [None]
